FAERS Safety Report 6338182-7 (Version None)
Quarter: 2009Q3

REPORT INFORMATION
  Report Type: 
  Country: None (occurrence: None)
  Receive Date: 20090902
  Receipt Date: 20090826
  Transmission Date: 20100115
  Serious: Yes (Other)
  Sender: FDA-Public Use
  Company Number: US-PFIZER INC-2009260648

PATIENT
  Sex: Male

DRUGS (1)
  1. NICOTROL [Suspect]

REACTIONS (2)
  - EXPIRED DRUG ADMINISTERED [None]
  - THROMBOSIS [None]
